FAERS Safety Report 18393439 (Version 2)
Quarter: 2021Q1

REPORT INFORMATION
  Report Type: Spontaneous
  Country: SV (occurrence: SV)
  Receive Date: 20201016
  Receipt Date: 20210108
  Transmission Date: 20210419
  Serious: Yes (Death, Other)
  Sender: FDA-Public Use
  Company Number: NVSC2019SV048906

PATIENT
  Age: 73 Year
  Sex: Female

DRUGS (2)
  1. GLIVEC [Suspect]
     Active Substance: IMATINIB MESYLATE
     Indication: GASTROINTESTINAL STROMAL TUMOUR
     Dosage: 600 MG (6 OF 100 MG)
     Route: 065
  2. GLIVEC [Suspect]
     Active Substance: IMATINIB MESYLATE
     Dosage: 400 MG
     Route: 065

REACTIONS (8)
  - Cancer pain [Unknown]
  - Drug intolerance [Unknown]
  - Metastases to liver [Unknown]
  - Gastric neoplasm [Unknown]
  - Death [Fatal]
  - Metastases to peritoneum [Unknown]
  - Neoplasm recurrence [Unknown]
  - Metastases to gastrointestinal tract [Unknown]

NARRATIVE: CASE EVENT DATE: 20201011
